FAERS Safety Report 25998084 (Version 1)
Quarter: 2025Q4

REPORT INFORMATION
  Report Type: Report from Study
  Country: CA (occurrence: CA)
  Receive Date: 20251105
  Receipt Date: 20251105
  Transmission Date: 20260118
  Serious: Yes (Death, Other)
  Sender: SANOFI AVENTIS
  Company Number: CA-SA-2025SA325611

PATIENT
  Age: 70 Year
  Sex: Male

DRUGS (12)
  1. BELUMOSUDIL MESYLATE [Suspect]
     Active Substance: BELUMOSUDIL MESYLATE
     Indication: Chronic graft versus host disease
     Dosage: 200 MG, QD
     Route: 048
     Dates: start: 20250907, end: 20250928
  2. UMECLIDINIUM [Concomitant]
     Active Substance: UMECLIDINIUM
     Dosage: UNK
  3. SULFATRIM [Concomitant]
     Active Substance: SULFAMETHOXAZOLE\TRIMETHOPRIM
     Dosage: UNK
  4. SERTRALINE [Concomitant]
     Active Substance: SERTRALINE HYDROCHLORIDE
     Dosage: UNK
  5. AZITHROMYCIN [Concomitant]
     Active Substance: AZITHROMYCIN
     Dosage: UNK
  6. MONTELUKAST [Concomitant]
     Active Substance: MONTELUKAST
     Dosage: UNK
  7. APIXABAN [Concomitant]
     Active Substance: APIXABAN
     Dosage: UNK
  8. CLONAZEPAM [Concomitant]
     Active Substance: CLONAZEPAM
     Dosage: UNK
  9. FLUCONAZOLE [Concomitant]
     Active Substance: FLUCONAZOLE
     Dosage: UNK
  10. RUXOLITINIB [Concomitant]
     Active Substance: RUXOLITINIB
     Dosage: UNK
  11. VORICONAZOLE [Concomitant]
     Active Substance: VORICONAZOLE
     Dosage: UNK
  12. VALACYCLOVIR [Concomitant]
     Active Substance: VALACYCLOVIR HYDROCHLORIDE
     Dosage: UNK

REACTIONS (1)
  - Pneumonia [Fatal]

NARRATIVE: CASE EVENT DATE: 20250901
